FAERS Safety Report 7986990-9 (Version None)
Quarter: 2011Q4

REPORT INFORMATION
  Report Type: 
  Country: None (occurrence: None)
  Receive Date: 20111216
  Receipt Date: 20111215
  Transmission Date: 20120403
  Serious: Yes (Hospitalization)
  Sender: FDA-Public Use
  Company Number: IT-BAYER-2011-120930

PATIENT
  Age: 77 Year
  Sex: Male

DRUGS (7)
  1. TORADOL [Suspect]
     Indication: PAIN
     Dosage: DAILY DOSE 10 GTT
     Route: 048
     Dates: start: 20110922, end: 20111122
  2. TRIATEC HCT [Concomitant]
     Dosage: UNK
     Route: 048
  3. LOPRESSOR [Concomitant]
     Route: 048
  4. ESAPENT [Concomitant]
     Route: 048
  5. ASPIRIN [Suspect]
     Dosage: 100 MG, QD
     Route: 048
     Dates: start: 20010101, end: 20111122
  6. TERAPROST [Concomitant]
     Route: 048
  7. LASIX [Concomitant]
     Route: 048

REACTIONS (2)
  - DUODENAL ULCER HAEMORRHAGE [None]
  - BLOOD CREATINE INCREASED [None]
